FAERS Safety Report 8117066-8 (Version None)
Quarter: 2011Q4

REPORT INFORMATION
  Report Type: 
  Country: None (occurrence: None)
  Receive Date: 20111227
  Receipt Date: 20110209
  Transmission Date: 20120403
  Serious: Yes (Other)
  Sender: FDA-Public Use
  Company Number: PHHY2011US11851

PATIENT
  Age: 34 Year
  Sex: Female
  Weight: 75.5 kg

DRUGS (1)
  1. FEMARA [Suspect]

REACTIONS (1)
  - OSTEOPOROSIS [None]
